FAERS Safety Report 8442376 (Version 3)
Quarter: 2014Q1

REPORT INFORMATION
  Report Type: Spontaneous
  Country: US (occurrence: US)
  Receive Date: 20120306
  Receipt Date: 20140318
  Transmission Date: 20141002
  Serious: Yes (Other)
  Sender: FDA-Public Use
  Company Number: US-BAYER-2012-019447

PATIENT
  Age: 18 Year
  Sex: Female
  Weight: 37.19 kg

DRUGS (6)
  1. YASMIN [Suspect]
     Indication: PRODUCT USED FOR UNKNOWN INDICATION
     Dosage: UNK
     Dates: start: 20030101, end: 2003
  2. ADVIL [Concomitant]
     Indication: HEADACHE
     Dosage: UNK UNK, PRN
  3. TYLENOL [Concomitant]
     Indication: HEADACHE
     Dosage: UNK UNK, PRN
  4. ASPIRIN [Concomitant]
     Indication: HEADACHE
     Dosage: UNK UNK, PRN
  5. COLDMED [Concomitant]
     Indication: FEELING COLD
     Dosage: UNK UNK, PRN
  6. COUGH AND COLD PREPARATIONS [Concomitant]
     Indication: FEELING COLD
     Dosage: UNK UNK, PRN

REACTIONS (3)
  - Cholecystitis chronic [None]
  - Biliary dyskinesia [None]
  - Gallbladder disorder [None]
